FAERS Safety Report 22614060 (Version 1)
Quarter: 2023Q2

REPORT INFORMATION
  Report Type: Other
  Country: CN (occurrence: None)
  Receive Date: 20230619
  Receipt Date: 20230619
  Transmission Date: 20230721
  Serious: Yes (Other)
  Sender: FDA-Public Use
  Company Number: CN-ROCHE-2998043

PATIENT

DRUGS (6)
  1. RITUXIMAB [Suspect]
     Active Substance: RITUXIMAB
     Indication: Diffuse large B-cell lymphoma
     Dosage: FOR 6 CYCLES
     Route: 042
  2. RITUXIMAB [Suspect]
     Active Substance: RITUXIMAB
     Dosage: FOR 6 CYCLE
     Route: 042
  3. TORIPALIMAB [Suspect]
     Active Substance: TORIPALIMAB
     Indication: Diffuse large B-cell lymphoma
     Dosage: FOR UP TO 6 CYCLES AS INDUCTION, FOLLOWED BY 1 CYCLE EVERY 8 WEEKS FOR UP TO 6 CYCLES AS MAINTAINCE.
     Route: 042
  4. PEMBROLIZUMAB [Suspect]
     Active Substance: PEMBROLIZUMAB
     Indication: Diffuse large B-cell lymphoma
     Dosage: FOR UP TO 6 CYCLES AS INDUCTION, FOLLOWED BY 1 CYCLE EVERY 8 WEEKS FOR UP TO 6 CYCLES AS MAINTAINCE.
     Route: 042
  5. NIVOLUMAB [Suspect]
     Active Substance: NIVOLUMAB
     Indication: Diffuse large B-cell lymphoma
     Dosage: FOR UP TO 6 CYCLES AS INDUCTION, FOLLOWED BY 1 CYCLE EVERY 8 WEEKS FOR UP TO 6 CYCLES AS MAINTAINCE.
     Route: 042
  6. SINTILIMAB [Suspect]
     Active Substance: SINTILIMAB
     Indication: Diffuse large B-cell lymphoma
     Dosage: FOR UP TO 6 CYCLES AS INDUCTION, FOLLOWED BY 1 CYCLE EVERY 8 WEEKS FOR UP TO 6 CYCLES AS MAINTAINCE.
     Route: 042

REACTIONS (16)
  - Neutropenia [Unknown]
  - Interstitial lung disease [Unknown]
  - Hypophysitis [Unknown]
  - Leukopenia [Unknown]
  - Hypothyroidism [Unknown]
  - Haemophagocytic lymphohistiocytosis [Unknown]
  - Rash [Unknown]
  - Fatigue [Unknown]
  - Decreased appetite [Unknown]
  - Hyperthyroidism [Unknown]
  - Diarrhoea [Unknown]
  - Nausea [Unknown]
  - Hyponatraemia [Unknown]
  - Hyperuricaemia [Unknown]
  - Hyperglycaemia [Unknown]
  - Hypertriglyceridaemia [Unknown]
